FAERS Safety Report 21126255 (Version 2)
Quarter: 2022Q3

REPORT INFORMATION
  Report Type: Spontaneous
  Country: DE (occurrence: DE)
  Receive Date: 20220725
  Receipt Date: 20220803
  Transmission Date: 20221027
  Serious: Yes (Hospitalization)
  Sender: FDA-Public Use
  Company Number: DE-OTSUKA-2022_036689

PATIENT
  Age: 28 Year
  Sex: Male

DRUGS (8)
  1. ARIPIPRAZOLE [Suspect]
     Active Substance: ARIPIPRAZOLE
     Indication: Schizophrenia
     Dosage: 10 MG
     Route: 065
     Dates: start: 20051110, end: 20051116
  2. ARIPIPRAZOLE [Suspect]
     Active Substance: ARIPIPRAZOLE
     Dosage: 15 MG
     Route: 065
     Dates: start: 20051117, end: 20051122
  3. ARIPIPRAZOLE [Suspect]
     Active Substance: ARIPIPRAZOLE
     Dosage: 30 MG
     Route: 065
     Dates: start: 20051123, end: 20051220
  4. FLUPENTIXOL [Suspect]
     Active Substance: FLUPENTIXOL
     Indication: Psychotic disorder
     Dosage: 10 MG
     Route: 065
     Dates: start: 20051013, end: 20051025
  5. FLUPENTIXOL [Suspect]
     Active Substance: FLUPENTIXOL
     Dosage: 15 MG
     Route: 065
     Dates: start: 20051026, end: 20051205
  6. FLUPENTIXOL [Suspect]
     Active Substance: FLUPENTIXOL
     Dosage: 20 MG, QD
     Route: 065
     Dates: start: 20051206
  7. LORAZEPAM [Concomitant]
     Active Substance: LORAZEPAM
     Indication: Product used for unknown indication
     Dosage: 3 MG
     Route: 065
     Dates: start: 20051014, end: 20051214
  8. LORAZEPAM [Concomitant]
     Active Substance: LORAZEPAM
     Dosage: 6 MG, QD
     Route: 065
     Dates: start: 20051215, end: 20060103

REACTIONS (5)
  - Psychotic disorder [Recovering/Resolving]
  - Delusion of grandeur [Unknown]
  - Thinking abnormal [Unknown]
  - Irritability [Unknown]
  - Product use in unapproved indication [Unknown]

NARRATIVE: CASE EVENT DATE: 20051110
